FAERS Safety Report 4854573-5 (Version None)
Quarter: 2005Q4

REPORT INFORMATION
  Report Type: 
  Country: None (occurrence: None)
  Receive Date: 20051215
  Receipt Date: 20000410
  Transmission Date: 20060501
  Serious: Yes (Death, Hospitalization)
  Sender: FDA-Public Use
  Company Number: US-NOVOPROD-203372

PATIENT
  Age: 91 Year
  Sex: Male

DRUGS (3)
  1. NOVOSEVEN [Suspect]
     Indication: ACQUIRED HAEMOPHILIA WITH ANTI FVIII, XI, OR XIII
     Route: 042
     Dates: start: 20000410
  2. NOVOSEVEN [Suspect]
     Route: 042
     Dates: start: 20000410, end: 20000413
  3. EPINEPHRINE [Concomitant]

REACTIONS (2)
  - BRADYCARDIA [None]
  - THROMBOTIC STROKE [None]
